FAERS Safety Report 8826318 (Version 3)
Quarter: 2013Q2

REPORT INFORMATION
  Report Type: Spontaneous
  Country: US (occurrence: US)
  Receive Date: 20121005
  Receipt Date: 20130423
  Transmission Date: 20140414
  Serious: Yes (Death, Hospitalization, Disabling)
  Sender: FDA-Public Use
  Company Number: US-BRISTOL-MYERS SQUIBB COMPANY-17009044

PATIENT
  Age: 84 Year
  Sex: Female

DRUGS (4)
  1. YERVOY [Suspect]
     Indication: METASTATIC MALIGNANT MELANOMA
     Dosage: 200MG/40ML, 2 DOSES3MG/KG ON 19JUN12,10JUL12
     Route: 042
     Dates: start: 20120619, end: 20120710
  2. ASA [Concomitant]
     Dosage: PRIOR TO YERVOY
  3. ZANTAC [Concomitant]
  4. ZANTAC [Concomitant]
     Dosage: 1 DF: 150, WITH STEROIDS

REACTIONS (3)
  - Malignant neoplasm progression [Fatal]
  - Rash [Recovered/Resolved]
  - Diarrhoea [Recovered/Resolved]
